FAERS Safety Report 18603880 (Version 1)
Quarter: 2020Q4

REPORT INFORMATION
  Report Type: Spontaneous
  Country: AR (occurrence: AR)
  Receive Date: 20201211
  Receipt Date: 20201211
  Transmission Date: 20210114
  Serious: Yes (Other)
  Sender: FDA-Public Use
  Company Number: AR-ALKEM LABORATORIES LIMITED-AR-ALKEM-2020-08677

PATIENT
  Age: 61 Year
  Sex: Male

DRUGS (3)
  1. MYCOPHENOLATE MOFETIL. [Suspect]
     Active Substance: MYCOPHENOLATE MOFETIL
     Indication: IMMUNOSUPPRESSANT DRUG THERAPY
     Dosage: UNK
     Route: 065
     Dates: start: 201902, end: 201904
  2. METHYLPREDNISOLONE. [Concomitant]
     Active Substance: METHYLPREDNISOLONE
     Indication: IMMUNOSUPPRESSANT DRUG THERAPY
     Dosage: UNK
     Route: 065
     Dates: start: 201902
  3. BELATACEPT [Concomitant]
     Active Substance: BELATACEPT
     Indication: IMMUNOSUPPRESSANT DRUG THERAPY
     Dosage: UNK
     Route: 065
     Dates: start: 201902

REACTIONS (10)
  - Asthenia [Recovered/Resolved]
  - Neutropenia [Recovered/Resolved]
  - Mucosal ulceration [Recovered/Resolved]
  - Cytomegalovirus infection [Recovered/Resolved]
  - Anaemia [Recovered/Resolved]
  - BK virus infection [Recovered/Resolved]
  - Kidney fibrosis [Recovered/Resolved]
  - Renal tubular atrophy [Recovered/Resolved]
  - Glomerulosclerosis [Recovered/Resolved]
  - Renal impairment [Recovered/Resolved]

NARRATIVE: CASE EVENT DATE: 201904
